FAERS Safety Report 5206935-4 (Version None)
Quarter: 2007Q1

REPORT INFORMATION
  Report Type: 
  Country: None (occurrence: None)
  Receive Date: 20070112
  Receipt Date: 20070105
  Transmission Date: 20070707
  Serious: Yes (Death, Disabling)
  Sender: FDA-Public Use
  Company Number: PHRM2007FR00448

PATIENT
  Age: 74 Year
  Sex: Female
  Weight: 47 kg

DRUGS (9)
  1. ZOMETA [Suspect]
     Indication: MULTIPLE MYELOMA
     Dosage: 4 MG, QMO
     Route: 042
     Dates: start: 20040319, end: 20060607
  2. AREDIA [Suspect]
     Indication: MULTIPLE MYELOMA
     Route: 042
  3. ALKERAN [Concomitant]
  4. DECTANCYL [Concomitant]
  5. OGAST [Concomitant]
  6. ARANESP [Concomitant]
  7. PROZAC [Concomitant]
  8. MORPHINE [Concomitant]
  9. TARDYFERON [Concomitant]

REACTIONS (15)
  - BONE DEVELOPMENT ABNORMAL [None]
  - BONE DISORDER [None]
  - DEATH [None]
  - FACE OEDEMA [None]
  - GINGIVAL BLEEDING [None]
  - OPEN WOUND [None]
  - OSTEITIS [None]
  - OSTEOLYSIS [None]
  - OSTEONECROSIS [None]
  - PAIN IN JAW [None]
  - PARANASAL SINUS HYPERSECRETION [None]
  - PERIODONTAL DISEASE [None]
  - SINUSITIS [None]
  - TOOTH ABSCESS [None]
  - TOOTH EXTRACTION [None]
